FAERS Safety Report 8620184-9 (Version None)
Quarter: 2012Q3

REPORT INFORMATION
  Report Type: 
  Country: None (occurrence: None)
  Receive Date: 20120824
  Receipt Date: 20120817
  Transmission Date: 20120928
  Serious: Yes (Congenital Anomaly)
  Sender: FDA-Public Use
  Company Number: PHHY2012DK071390

PATIENT

DRUGS (1)
  1. CITALOPRAM HYDROBROMIDE [Suspect]
     Indication: DEPRESSION
     Route: 064

REACTIONS (4)
  - MENINGOMYELOCELE [None]
  - NEURAL TUBE DEFECT [None]
  - FOETAL EXPOSURE DURING PREGNANCY [None]
  - HYDROCEPHALUS [None]
